FAERS Safety Report 8336063-0 (Version None)
Quarter: 2012Q1

REPORT INFORMATION
  Report Type: 
  Country: None (occurrence: None)
  Receive Date: 20120329
  Receipt Date: 20090504
  Transmission Date: 20120608
  Serious: Yes (Other)
  Sender: FDA-Public Use
  Company Number: PHEH2009US04085

PATIENT
  Age: 71 Year
  Sex: Female
  Weight: 58.5 kg

DRUGS (5)
  1. NEXIUM [Concomitant]
  2. AGRYLIN [Concomitant]
  3. IRON (IRON) [Concomitant]
  4. ZYRTEC [Concomitant]
  5. EXELON [Suspect]
     Indication: DEMENTIA ALZHEIMER'S TYPE
     Dosage: 9.5 MG, TOPICAL
     Route: 061
     Dates: start: 20081222, end: 20090122

REACTIONS (3)
  - SWELLING FACE [None]
  - DYSARTHRIA [None]
  - SWOLLEN TONGUE [None]
